FAERS Safety Report 9132238 (Version 3)
Quarter: 2013Q1

REPORT INFORMATION
  Report Type: Spontaneous
  Country: BR (occurrence: BR)
  Receive Date: 20130301
  Receipt Date: 20130322
  Transmission Date: 20140127
  Serious: Yes (Other)
  Sender: FDA-Public Use
  Company Number: BR-PFIZER INC-2013071923

PATIENT
  Sex: 0

DRUGS (1)
  1. TECTA [Suspect]
     Dosage: 40 MG, UNK
     Route: 048

REACTIONS (2)
  - Panic attack [Unknown]
  - Depression [Unknown]
